FAERS Safety Report 12100123 (Version 1)
Quarter: 2016Q1

REPORT INFORMATION
  Report Type: Spontaneous
  Country: US (occurrence: US)
  Receive Date: 20160222
  Receipt Date: 20160222
  Transmission Date: 20160526
  Serious: Yes (Other)
  Sender: FDA-Public Use
  Company Number: US-PFIZER INC-2016103774

PATIENT
  Age: 6 Decade
  Sex: Female
  Weight: 68 kg

DRUGS (1)
  1. MENEST [Suspect]
     Active Substance: ESTROGENS, ESTERIFIED
     Indication: HOT FLUSH
     Dosage: 0.625 MG, CYCLIC (ONCE A DAY, 3 WEEKS ON AND 7 OR 10 DAYS OFF)

REACTIONS (4)
  - Headache [Recovered/Resolved]
  - Breast cancer [Unknown]
  - Dental caries [Not Recovered/Not Resolved]
  - Bone density decreased [Not Recovered/Not Resolved]

NARRATIVE: CASE EVENT DATE: 2014
